FAERS Safety Report 15587930 (Version 10)
Quarter: 2021Q2

REPORT INFORMATION
  Report Type: Spontaneous
  Country: US (occurrence: US)
  Receive Date: 20181105
  Receipt Date: 20210624
  Transmission Date: 20210716
  Serious: Yes (Other)
  Sender: FDA-Public Use
  Company Number: US-PFIZER INC-2018443142

PATIENT
  Age: 56 Year
  Sex: Female

DRUGS (2)
  1. LYRICA [Suspect]
     Active Substance: PREGABALIN
     Indication: NEUROPATHY PERIPHERAL
  2. LYRICA [Suspect]
     Active Substance: PREGABALIN
     Indication: FIBROMYALGIA
     Dosage: UNK

REACTIONS (12)
  - Epilepsy [Unknown]
  - Pyrexia [Unknown]
  - Memory impairment [Unknown]
  - Condition aggravated [Unknown]
  - Frustration tolerance decreased [Unknown]
  - Prescription drug used without a prescription [Unknown]
  - Loss of personal independence in daily activities [Unknown]
  - Bone disorder [Unknown]
  - Hypersensitivity [Unknown]
  - Hypoacusis [Unknown]
  - Thinking abnormal [Unknown]
  - Sensitivity to weather change [Unknown]
